FAERS Safety Report 8392138-1 (Version None)
Quarter: 2012Q2

REPORT INFORMATION
  Report Type: 
  Country: None (occurrence: None)
  Receive Date: 20120529
  Receipt Date: 20120520
  Transmission Date: 20120825
  Serious: Yes (Other)
  Sender: FDA-Public Use
  Company Number: DZ-ROCHE-1072833

PATIENT
  Age: 30 Year
  Sex: Male

DRUGS (2)
  1. PEGASYS [Suspect]
     Indication: HEPATITIS C
     Route: 058
     Dates: start: 20120401
  2. COPEGUS [Suspect]
     Indication: HEPATITIS C
     Route: 048
     Dates: start: 20120401, end: 20120520

REACTIONS (6)
  - FATIGUE [None]
  - PRURITUS [None]
  - TREMOR [None]
  - OCULAR HYPERAEMIA [None]
  - OVERDOSE [None]
  - EYE SWELLING [None]
